FAERS Safety Report 18871901 (Version 1)
Quarter: 2021Q1

REPORT INFORMATION
  Report Type: Spontaneous
  Country: US (occurrence: US)
  Receive Date: 20210210
  Receipt Date: 20210210
  Transmission Date: 20210420
  Serious: Yes (Hospitalization)
  Sender: FDA-Public Use
  Company Number: None

PATIENT
  Sex: Female
  Weight: 63 kg

DRUGS (16)
  1. LIDOCAINE AND PRILOCAINE [Concomitant]
     Active Substance: LIDOCAINE\PRILOCAINE
  2. LISINOPRIL. [Concomitant]
     Active Substance: LISINOPRIL
  3. ZOFRAN [Concomitant]
     Active Substance: ONDANSETRON HYDROCHLORIDE
  4. VITAMIN A [Concomitant]
     Active Substance: VITAMIN A
  5. COLESTIPOL [Concomitant]
     Active Substance: COLESTIPOL
  6. GLUTAMINE [Concomitant]
     Active Substance: GLUTAMINE
  7. VITAMIN B COMPLEX [Concomitant]
     Active Substance: CYANOCOBALAMIN\DEXPANTHENOL\NIACINAMIDE\PYRIDOXINE HYDROCHLORIDE\RIBOFLAVIN 5^-PHOSPHATE SODIUM\THIAMINE HYDROCHLORIDE\VITAMIN B COMPLEX
  8. MACROBID [Concomitant]
     Active Substance: NITROFURANTOIN\NITROFURANTOIN MONOHYDRATE
  9. LOMOTIL [Concomitant]
     Active Substance: ATROPINE SULFATE\DIPHENOXYLATE HYDROCHLORIDE
  10. PYRIDIUM [Concomitant]
     Active Substance: PHENAZOPYRIDINE
  11. CAPECITABINE. [Suspect]
     Active Substance: CAPECITABINE
     Indication: BREAST CANCER
     Dates: start: 20201208
  12. HERCEPTIN [Concomitant]
     Active Substance: TRASTUZUMAB
  13. FOLIC ACID. [Concomitant]
     Active Substance: FOLIC ACID
  14. XARELTO [Concomitant]
     Active Substance: RIVAROXABAN
  15. VITAMIN E [Concomitant]
     Active Substance: .ALPHA.-TOCOPHEROL
  16. CITRACAL + VITAMIN D3 [Concomitant]

REACTIONS (2)
  - Gastrointestinal disorder [None]
  - Therapy interrupted [None]
